FAERS Safety Report 8854487 (Version 1)
Quarter: 2012Q4

REPORT INFORMATION
  Report Type: Spontaneous
  Country: US (occurrence: None)
  Receive Date: 20121022
  Receipt Date: 20121022
  Transmission Date: 20130627
  Serious: No
  Sender: FDA-Public Use
  Company Number: None

PATIENT
  Age: 35 Year
  Sex: Female
  Weight: 96.16 kg

DRUGS (1)
  1. ORTHO-CYCLEN [Suspect]
     Dosage: 1 daily po
     Route: 048
     Dates: start: 20120820, end: 20121019

REACTIONS (5)
  - Nausea [None]
  - Vomiting [None]
  - Acne [None]
  - Depression [None]
  - Menstrual disorder [None]
